FAERS Safety Report 8809606 (Version 2)
Quarter: 2013Q1

REPORT INFORMATION
  Report Type: Spontaneous
  Country: US (occurrence: US)
  Receive Date: 20120926
  Receipt Date: 20130212
  Transmission Date: 20140127
  Serious: Yes (Death)
  Sender: FDA-Public Use
  Company Number: US-ROCHE-1123341

PATIENT
  Sex: Female

DRUGS (4)
  1. AVASTIN [Suspect]
     Indication: BREAST CANCER FEMALE
     Dosage: LAST DOSE: 15/SEP/2005
     Route: 065
  2. XELODA [Suspect]
     Indication: BREAST CANCER FEMALE
     Dosage: LAST DOSE: 15/SEP/2005
     Route: 065
  3. MORPHINE [Concomitant]
  4. VICODIN [Concomitant]

REACTIONS (2)
  - Death [Fatal]
  - Disease progression [Unknown]
